FAERS Safety Report 25167966 (Version 1)
Quarter: 2025Q2

REPORT INFORMATION
  Report Type: Spontaneous
  Country: GB (occurrence: GB)
  Receive Date: 20250407
  Receipt Date: 20250407
  Transmission Date: 20250717
  Serious: Yes (Hospitalization, Disabling, Other)
  Sender: ELI LILLY AND CO
  Company Number: None

PATIENT
  Age: 23 Year
  Sex: Female
  Weight: 80 kg

DRUGS (1)
  1. MOUNJARO [Suspect]
     Active Substance: TIRZEPATIDE
     Indication: Weight control
     Route: 065
     Dates: start: 20250101

REACTIONS (3)
  - Faecal vomiting [Recovering/Resolving]
  - Dizziness [Recovered/Resolved]
  - Abdominal pain upper [Recovering/Resolving]
